FAERS Safety Report 8900506 (Version 1)
Quarter: 2012Q4

REPORT INFORMATION
  Report Type: 
  Country: US (occurrence: US)
  Receive Date: 20121108
  Receipt Date: 20121108
  Transmission Date: 20130627
  Serious: No
  Sender: FDA-Public Use
  Company Number: US-AMGEN-USASP2012038144

PATIENT
  Age: 45 Year
  Sex: Female

DRUGS (6)
  1. ENBREL [Suspect]
     Indication: PRODUCT USED FOR UNKNOWN INDICATION
     Dosage: 50 mg, qwk
     Route: 058
  2. REGLAN                             /00041901/ [Concomitant]
     Dosage: 10 mg, UNK
  3. PROCHLORPERAZ [Concomitant]
     Dosage: 10 mg, UNK
  4. NEXIUM                             /01479302/ [Concomitant]
     Dosage: 40 mg, UNK
  5. VIT D [Concomitant]
     Dosage: 5000 unit, UNK
  6. ALIGN [Concomitant]
     Dosage: 4 mg, UNK

REACTIONS (1)
  - Injection site bruising [Unknown]
